FAERS Safety Report 10755551 (Version 1)
Quarter: 2015Q1

REPORT INFORMATION
  Report Type: Spontaneous
  Country: CN (occurrence: CN)
  Receive Date: 20150202
  Receipt Date: 20150202
  Transmission Date: 20150721
  Serious: Yes (Death, Other)
  Sender: FDA-Public Use
  Company Number: CN-ASTRAZENECA-2015SE07032

PATIENT
  Age: 34 Year
  Sex: Female

DRUGS (1)
  1. NAROPIN [Suspect]
     Active Substance: ROPIVACAINE HYDROCHLORIDE
     Indication: ANAESTHESIA
     Route: 065
     Dates: start: 20150116, end: 20150116

REACTIONS (4)
  - Seizure [Unknown]
  - Anaphylactic reaction [Fatal]
  - Dysphoria [Unknown]
  - Haemorrhage [Fatal]

NARRATIVE: CASE EVENT DATE: 20150116
